FAERS Safety Report 6354891-8 (Version None)
Quarter: 2009Q3

REPORT INFORMATION
  Report Type: 
  Country: None (occurrence: None)
  Receive Date: 20090914
  Receipt Date: 20090903
  Transmission Date: 20100115
  Serious: Yes (Other)
  Sender: FDA-Public Use
  Company Number: BE-MERCK-0908BEL00007

PATIENT
  Age: 63 Year
  Sex: Male
  Weight: 80 kg

DRUGS (6)
  1. VYTORIN [Suspect]
     Indication: HYPERCHOLESTEROLAEMIA
     Route: 048
     Dates: start: 20090324, end: 20090508
  2. CLOPIDOGREL BISULFATE [Concomitant]
     Route: 048
     Dates: start: 20090323
  3. LISINOPRIL [Concomitant]
     Route: 048
     Dates: start: 20070101
  4. TIMOLOL MALEATE [Concomitant]
     Indication: GLAUCOMA
     Route: 047
  5. OTILONIUM BROMIDE [Concomitant]
     Route: 048
  6. ESOMEPRAZOLE MAGNESIUM [Concomitant]
     Indication: DYSPEPSIA
     Route: 048

REACTIONS (3)
  - OEDEMATOUS PANCREATITIS [None]
  - PANCREATIC NEOPLASM [None]
  - PANCREATITIS [None]
